FAERS Safety Report 7284533-9 (Version None)
Quarter: 2011Q1

REPORT INFORMATION
  Report Type: 
  Country: None (occurrence: None)
  Receive Date: 20110209
  Receipt Date: 20110204
  Transmission Date: 20110831
  Serious: Yes (Hospitalization)
  Sender: FDA-Public Use
  Company Number: CA-BRISTOL-MYERS SQUIBB COMPANY-15484637

PATIENT
  Age: 60 Year
  Sex: Male

DRUGS (11)
  1. CISPLATIN [Suspect]
     Indication: NON-SMALL CELL LUNG CANCER
     Route: 042
     Dates: start: 20101220, end: 20101220
  2. CRESTOR [Concomitant]
     Dates: start: 20060101, end: 20110111
  3. DIGOXIN [Concomitant]
     Dates: start: 20060101
  4. ATENOLOL [Concomitant]
     Dates: start: 20060101
  5. ATIVAN [Concomitant]
     Dates: start: 20101213, end: 20101216
  6. DEXAMETHASONE [Concomitant]
     Dates: start: 20101221, end: 20101224
  7. VINORELBINE [Suspect]
     Indication: NON-SMALL CELL LUNG CANCER
     Route: 042
     Dates: start: 20101220, end: 20101220
  8. ASAPHEN [Concomitant]
     Dates: start: 19960101, end: 20110111
  9. KYTRIL [Concomitant]
     Dates: start: 20101220, end: 20101220
  10. CETUXIMAB [Suspect]
     Indication: NON-SMALL CELL LUNG CANCER
     Route: 042
     Dates: start: 20101220, end: 20101220
  11. EMEND [Concomitant]
     Dates: start: 20101220, end: 20101222

REACTIONS (3)
  - ATRIAL FIBRILLATION [None]
  - PULMONARY EMBOLISM [None]
  - THROMBOPHLEBITIS [None]
